FAERS Safety Report 19881575 (Version 1)
Quarter: 2021Q3

REPORT INFORMATION
  Report Type: Spontaneous
  Country: IN (occurrence: IN)
  Receive Date: 20210924
  Receipt Date: 20210924
  Transmission Date: 20211014
  Serious: Yes (Death, Life-Threatening, Other)
  Sender: FDA-Public Use
  Company Number: IN-PFIZER INC-2013289113

PATIENT
  Age: 10 Year
  Sex: Male

DRUGS (2)
  1. ATGAM [Suspect]
     Active Substance: EQUINE THYMOCYTE IMMUNE GLOBULIN
     Indication: APLASTIC ANAEMIA
     Dosage: 40 MG/KG/DAY
  2. PREDNISOLONE. [Suspect]
     Active Substance: PREDNISOLONE
     Indication: APLASTIC ANAEMIA
     Dosage: 1 MG/KG ON DAY +1

REACTIONS (5)
  - Cardiac arrest [Fatal]
  - Generalised tonic-clonic seizure [Not Recovered/Not Resolved]
  - Cerebral haemorrhage [Not Recovered/Not Resolved]
  - Hypertensive encephalopathy [Not Recovered/Not Resolved]
  - Posterior reversible encephalopathy syndrome [Unknown]
